FAERS Safety Report 22096942 (Version 1)
Quarter: 2023Q1

REPORT INFORMATION
  Report Type: Spontaneous
  Country: CN (occurrence: CN)
  Receive Date: 20230315
  Receipt Date: 20230315
  Transmission Date: 20230418
  Serious: Yes (Other)
  Sender: FDA-Public Use
  Company Number: CN-PFIZER INC-PV202300046408

PATIENT
  Age: 53 Year
  Sex: Male
  Weight: 78 kg

DRUGS (3)
  1. CYTARABINE [Suspect]
     Active Substance: CYTARABINE
     Indication: Acute myeloid leukaemia
     Dosage: 6 G, 1X/DAY
     Route: 041
     Dates: start: 20221214, end: 20221215
  2. CYTARABINE [Suspect]
     Active Substance: CYTARABINE
     Dosage: 5.5 G, 1X/DAY
     Route: 041
     Dates: start: 20221216
  3. DEXTROSE [Concomitant]
     Active Substance: DEXTROSE
     Indication: Vehicle solution use
     Dosage: 500 ML, 1X/DAY
     Route: 041
     Dates: start: 20221214, end: 20221216

REACTIONS (2)
  - Transaminases increased [Recovering/Resolving]
  - Hepatic function abnormal [Recovering/Resolving]

NARRATIVE: CASE EVENT DATE: 20221216
